FAERS Safety Report 25899404 (Version 1)
Quarter: 2025Q4

REPORT INFORMATION
  Report Type: Spontaneous
  Country: BR (occurrence: BR)
  Receive Date: 20251009
  Receipt Date: 20251009
  Transmission Date: 20260118
  Serious: Yes (Other)
  Sender: GILEAD
  Company Number: BR-GSK-BR2025AMR124680

PATIENT

DRUGS (1)
  1. AMBRISENTAN [Suspect]
     Active Substance: AMBRISENTAN
     Indication: Product used for unknown indication
     Dosage: 10 MG (3X10)
     Route: 065

REACTIONS (2)
  - Drug dependence [Unknown]
  - General physical health deterioration [Unknown]
